FAERS Safety Report 6269805-9 (Version None)
Quarter: 2009Q3

REPORT INFORMATION
  Report Type: 
  Country: None (occurrence: None)
  Receive Date: 20090716
  Receipt Date: 20090707
  Transmission Date: 20100115
  Serious: Yes (Other)
  Sender: FDA-Public Use
  Company Number: BR-ASTRAZENECA-2008UW24511

PATIENT
  Age: 32 Year
  Sex: Female

DRUGS (1)
  1. ZOLADEX [Suspect]
     Indication: ENDOMETRIOSIS
     Dosage: 10.8 MG QUARTERLY
     Route: 058
     Dates: start: 20080701, end: 20081001

REACTIONS (9)
  - ABDOMINAL DISTENSION [None]
  - AMENORRHOEA [None]
  - DEPRESSION [None]
  - FATIGUE [None]
  - HEADACHE [None]
  - HOT FLUSH [None]
  - MYALGIA [None]
  - NERVOUSNESS [None]
  - WEIGHT INCREASED [None]
